FAERS Safety Report 8892805 (Version 1)
Quarter: 2012Q4

REPORT INFORMATION
  Report Type: 
  Country: US (occurrence: US)
  Receive Date: 20121107
  Receipt Date: 20121107
  Transmission Date: 20130627
  Serious: Yes (Hospitalization)
  Sender: FDA-Public Use
  Company Number: US-AMGEN-USASP2011054590

PATIENT
  Age: 65 Year
  Sex: Female

DRUGS (15)
  1. ENBREL [Suspect]
     Indication: PRODUCT USED FOR UNKNOWN INDICATION
     Dosage: 50 mg, qwk
     Route: 058
  2. EVISTA [Concomitant]
     Dosage: 60 mg, UNK
     Route: 048
  3. PLAQUENIL                          /00072603/ [Concomitant]
     Dosage: 200 mg, UNK
     Route: 048
  4. AMBIEN [Concomitant]
     Dosage: 5 mg, UNK
     Route: 048
  5. CELEBREX [Concomitant]
     Dosage: 50 mg, UNK
     Route: 048
  6. ULTRAM [Concomitant]
     Dosage: 50 mg, UNK
     Route: 048
  7. PREDNISONE [Concomitant]
     Dosage: 1 mg, UNK
     Route: 048
  8. ENALAPRIL [Concomitant]
     Dosage: 10 mg, UNK
     Route: 048
  9. CITALOPRAM [Concomitant]
     Dosage: 10 mg, UNK
     Route: 048
  10. FOLIC ACID [Concomitant]
     Dosage: 1 mg, UNK
     Route: 048
  11. PRILOSEC                           /00661201/ [Concomitant]
     Dosage: 10 mg, UNK
     Route: 048
  12. NEXIUM                             /01479302/ [Concomitant]
     Dosage: 20 mg, UNK
     Route: 048
  13. SKELAXIN                           /00611501/ [Concomitant]
     Dosage: 800 mg, UNK
     Route: 048
  14. CALCIUM 500+D [Concomitant]
     Route: 048
  15. METHOTREXATE [Concomitant]
     Route: 042

REACTIONS (1)
  - Anaemia [Unknown]
